FAERS Safety Report 16711830 (Version 2)
Quarter: 2020Q2

REPORT INFORMATION
  Report Type: Spontaneous
  Country: US (occurrence: US)
  Receive Date: 20190816
  Receipt Date: 20200625
  Transmission Date: 20200713
  Serious: No
  Sender: FDA-Public Use
  Company Number: US-SA-2019SA226302

PATIENT

DRUGS (1)
  1. DUPIXENT [Suspect]
     Active Substance: DUPILUMAB
     Indication: DERMATITIS ATOPIC
     Dosage: 300 MG, QOW
     Route: 058
     Dates: start: 20190416, end: 202004

REACTIONS (3)
  - Eye swelling [Unknown]
  - Vision blurred [Unknown]
  - Therapy cessation [Unknown]

NARRATIVE: CASE EVENT DATE: 201908
